FAERS Safety Report 9017830 (Version 2)
Quarter: 2013Q2

REPORT INFORMATION
  Report Type: Spontaneous
  Country: US (occurrence: US)
  Receive Date: 20130118
  Receipt Date: 20130508
  Transmission Date: 20140414
  Serious: No
  Sender: FDA-Public Use
  Company Number: US-BIOGENIDEC-2013BI002292

PATIENT
  Age: 33 Year
  Sex: Female

DRUGS (1)
  1. TYSABRI [Suspect]
     Indication: MULTIPLE SCLEROSIS
     Route: 042
     Dates: start: 20121001

REACTIONS (13)
  - Gait disturbance [Not Recovered/Not Resolved]
  - Temperature intolerance [Not Recovered/Not Resolved]
  - Muscle spasms [Recovered/Resolved]
  - Paraesthesia [Unknown]
  - Muscle spasticity [Recovered/Resolved]
  - Peroneal nerve palsy [Recovered/Resolved]
  - Fall [Recovered/Resolved]
  - Incontinence [Recovered/Resolved]
  - Fatigue [Recovered/Resolved]
  - Headache [Recovered/Resolved]
  - Asthenia [Recovered/Resolved]
  - Scar [Not Recovered/Not Resolved]
  - Face injury [Recovered/Resolved]
